FAERS Safety Report 6195306-2 (Version None)
Quarter: 2009Q2

REPORT INFORMATION
  Report Type: 
  Country: None (occurrence: None)
  Receive Date: 20090519
  Receipt Date: 20090512
  Transmission Date: 20091009
  Serious: Yes (Hospitalization, Other)
  Sender: FDA-Public Use
  Company Number: US-ELI_LILLY_AND_COMPANY-US200905002250

PATIENT
  Sex: Female
  Weight: 108.84 kg

DRUGS (8)
  1. BYETTA [Suspect]
     Indication: TYPE 2 DIABETES MELLITUS
     Dosage: 5 UG, 2/D
     Route: 058
     Dates: start: 20070101, end: 20080101
  2. BYETTA [Suspect]
     Dosage: 10 UG, 2/D
     Route: 058
     Dates: start: 20080101, end: 20090401
  3. BYETTA [Suspect]
     Dosage: 10 UG, 2/D
     Route: 058
     Dates: start: 20090428
  4. COUMADIN [Concomitant]
     Dosage: 5 MG, UNK
     Dates: start: 20050101
  5. SYNTHROID [Concomitant]
     Indication: THYROID DISORDER
     Dosage: 125 MG, UNK
  6. ZOCOR [Concomitant]
     Indication: BLOOD CHOLESTEROL INCREASED
     Dosage: 80 MG, UNK
  7. TRENTAL [Concomitant]
     Dosage: 400 MG, UNK
  8. DIOVAN [Concomitant]
     Indication: BLOOD PRESSURE INCREASED
     Dosage: 80 MG, UNK

REACTIONS (17)
  - ABDOMINAL PAIN UPPER [None]
  - BLOOD GLUCOSE INCREASED [None]
  - BLOOD POTASSIUM DECREASED [None]
  - BLOOD PRESSURE DECREASED [None]
  - CARDIAC DISORDER [None]
  - DEHYDRATION [None]
  - DIARRHOEA [None]
  - DIZZINESS [None]
  - GASTRIC DISORDER [None]
  - GASTRIC PH DECREASED [None]
  - GASTRITIS [None]
  - HEART VALVE INCOMPETENCE [None]
  - HIATUS HERNIA [None]
  - LOSS OF CONSCIOUSNESS [None]
  - LUNG DISORDER [None]
  - NAUSEA [None]
  - VOMITING [None]
